FAERS Safety Report 6436368-4 (Version None)
Quarter: 2009Q4

REPORT INFORMATION
  Report Type: 
  Country: None (occurrence: None)
  Receive Date: 20091111
  Receipt Date: 20091030
  Transmission Date: 20100525
  Serious: Yes (Hospitalization, Other)
  Sender: FDA-Public Use
  Company Number: PHHY2009FR44789

PATIENT
  Sex: Male
  Weight: 90 kg

DRUGS (7)
  1. RASILEZ [Suspect]
     Dosage: 300 MG, QD
     Route: 048
     Dates: start: 20091001, end: 20091006
  2. DAONIL [Concomitant]
     Dosage: 5 MG, BID
     Dates: start: 20070101, end: 20091005
  3. DAONIL [Concomitant]
     Dosage: 5 MG, BID
     Dates: start: 20091010
  4. EUPHYLLINE [Concomitant]
     Dosage: 300 MG, BID
     Route: 048
     Dates: start: 20091001
  5. HYPERIUM [Concomitant]
     Dosage: 1 MG, BID
     Route: 048
     Dates: start: 20080101
  6. PREVISCAN [Concomitant]
     Indication: ATRIAL FIBRILLATION
     Dosage: 1 DF/DAY
     Route: 048
  7. FUROSEMIDE [Concomitant]
     Dosage: 40 MG, QD
     Route: 048
     Dates: start: 20091001

REACTIONS (10)
  - BLOOD GLUCOSE INCREASED [None]
  - CONFUSIONAL STATE [None]
  - HYPERHIDROSIS [None]
  - HYPOGLYCAEMIA [None]
  - HYPOGLYCAEMIC COMA [None]
  - LOSS OF CONSCIOUSNESS [None]
  - MENTAL DISORDER [None]
  - PALLOR [None]
  - SOMNOLENCE [None]
  - VISION BLURRED [None]
